FAERS Safety Report 9186249 (Version 2)
Quarter: 2013Q2

REPORT INFORMATION
  Report Type: Spontaneous
  Country: IT (occurrence: IT)
  Receive Date: 20130325
  Receipt Date: 20130603
  Transmission Date: 20140414
  Serious: Yes (Hospitalization)
  Sender: FDA-Public Use
  Company Number: IT-PFIZER INC-2013093044

PATIENT
  Age: 77 Year
  Sex: Male

DRUGS (6)
  1. ZOLOFT [Suspect]
     Dosage: 25 MG, 1X/DAY
     Route: 048
     Dates: start: 20130228, end: 20130228
  2. LIORESAL [Suspect]
     Dosage: 25 MG, 1X/DAY
     Dates: start: 20130228, end: 20130228
  3. MOTILEX [Concomitant]
     Dosage: 1.5 MG, 1X/DAY
  4. LANSOX [Concomitant]
     Dosage: 15 MG, 1X/DAY
  5. CARDIOASPIRIN [Concomitant]
     Dosage: 100 MG, 1X/DAY
     Route: 048
  6. LEDERFOLIN [Concomitant]
     Dosage: 7.5 MG, 1X/DAY

REACTIONS (3)
  - Sopor [Recovering/Resolving]
  - Disorientation [Recovering/Resolving]
  - Blood pressure systolic increased [Unknown]
